FAERS Safety Report 8530336-4 (Version None)
Quarter: 2012Q3

REPORT INFORMATION
  Report Type: 
  Country: None (occurrence: None)
  Receive Date: 20120723
  Receipt Date: 20120720
  Transmission Date: 20120928
  Serious: No
  Sender: FDA-Public Use
  Company Number: US-PFIZER INC-2012176281

PATIENT
  Sex: Male
  Weight: 99.8 kg

DRUGS (3)
  1. ZOLOFT [Suspect]
     Indication: ANXIETY
  2. ZOLOFT [Suspect]
     Indication: DEPRESSION
     Dosage: 100 MG, DAILY
     Dates: start: 20120719
  3. ZOLOFT [Suspect]
     Indication: PANIC ATTACK

REACTIONS (5)
  - SLEEP DISORDER [None]
  - MALAISE [None]
  - SPONTANEOUS PENILE ERECTION [None]
  - FEELING HOT [None]
  - NAUSEA [None]
